FAERS Safety Report 17984262 (Version 1)
Quarter: 2020Q3

REPORT INFORMATION
  Report Type: Spontaneous
  Country: US (occurrence: US)
  Receive Date: 20200706
  Receipt Date: 20200706
  Transmission Date: 20201103
  Serious: Yes (Life-Threatening, Hospitalization)
  Sender: FDA-Public Use
  Company Number: None

PATIENT
  Age: 77 Year
  Sex: Female
  Weight: 86.2 kg

DRUGS (2)
  1. SOLIRIS [Concomitant]
     Active Substance: ECULIZUMAB
     Dates: start: 20191121, end: 20200513
  2. SOLIRIS [Suspect]
     Active Substance: ECULIZUMAB
     Indication: MYASTHENIA GRAVIS
     Dates: start: 20191121, end: 20200513

REACTIONS (3)
  - Actinomyces test positive [None]
  - Abdominal abscess [None]
  - Abscess bacterial [None]

NARRATIVE: CASE EVENT DATE: 20200509
